FAERS Safety Report 23066918 (Version 1)
Quarter: 2023Q4

REPORT INFORMATION
  Report Type: Spontaneous
  Country: ES (occurrence: ES)
  Receive Date: 20231016
  Receipt Date: 20231016
  Transmission Date: 20240109
  Serious: Yes (Hospitalization, Other)
  Sender: FDA-Public Use
  Company Number: None

PATIENT

DRUGS (9)
  1. DICLOFENAC [Suspect]
     Active Substance: DICLOFENAC
     Indication: Back pain
     Dosage: 50 MG, BID (Q12H)
     Route: 048
     Dates: start: 20230216, end: 20230316
  2. IBUPROFEN [Suspect]
     Active Substance: IBUPROFEN
     Indication: Back pain
     Dosage: 600 MG, TID (Q8H)
     Route: 048
     Dates: start: 20230303, end: 20230316
  3. LOSARTAN [Suspect]
     Active Substance: LOSARTAN
     Indication: Hypertension
     Dosage: 100 MG, QD (Q24H)
     Route: 048
     Dates: start: 20210527, end: 20230316
  4. LORAZEPAM [Concomitant]
     Active Substance: LORAZEPAM
     Indication: Anxiety
     Dosage: 1 MG, QD (Q24H NOC)
     Route: 048
     Dates: start: 20221221
  5. ESCITALOPRAM OXALATE [Concomitant]
     Active Substance: ESCITALOPRAM OXALATE
     Indication: Persistent depressive disorder
     Dosage: 20 MG (56 TABLETS)
     Route: 048
     Dates: start: 20190531
  6. OMEPRAZOLE [Concomitant]
     Active Substance: OMEPRAZOLE
     Indication: Diverticulum gastric
     Dosage: 20 MG (A-DE) (56 CAPSULES (BOTTLE))
     Route: 048
     Dates: start: 20210618
  7. OMNIC OCAS (TAMSULOSIN HYDROCHLORIDE) [Concomitant]
     Indication: Benign prostatic hyperplasia
     Dosage: 0.4 MG, QD (Q24H (30 TABLETS))
     Route: 048
     Dates: start: 20220526
  8. SYMBICORT [Concomitant]
     Active Substance: BUDESONIDE\FORMOTEROL FUMARATE DIHYDRATE
     Indication: Tobacco abuse
     Dosage: 2 PUFF(S), BID (160 MG/4.5 MICROGRAMS/INHALATION POWDER FOR INHALATION, 1 INHALER OF 120 DOSES)Q1)
     Route: 065
     Dates: start: 20220307
  9. ACETAMINOPHEN [Concomitant]
     Active Substance: ACETAMINOPHEN
     Indication: Bursitis
     Dosage: 650 MG (DECOCE) (EFG TABLETS, 40 TABLETS)
     Route: 048
     Dates: start: 20220512

REACTIONS (1)
  - Acute kidney injury [Recovered/Resolved]

NARRATIVE: CASE EVENT DATE: 20230316
